FAERS Safety Report 24729745 (Version 2)
Quarter: 2025Q4

REPORT INFORMATION
  Report Type: Spontaneous
  Country: US (occurrence: US)
  Receive Date: 20241213
  Receipt Date: 20251204
  Transmission Date: 20260118
  Serious: No
  Sender: ACCORD
  Company Number: US-Accord-451677

PATIENT
  Age: 74 Year
  Sex: Female

DRUGS (1)
  1. LEVOTHYROXINE SODIUM [Suspect]
     Active Substance: LEVOTHYROXINE SODIUM
     Indication: Thyroiditis
     Dosage: 25MCG TABLETS
     Dates: start: 2024

REACTIONS (5)
  - Alopecia [Unknown]
  - Rash [Unknown]
  - Madarosis [Unknown]
  - Eye discharge [Unknown]
  - Product packaging issue [Unknown]

NARRATIVE: CASE EVENT DATE: 20240101
